FAERS Safety Report 10152170 (Version 1)
Quarter: 2014Q2

REPORT INFORMATION
  Report Type: Spontaneous
  Country: QA (occurrence: QA)
  Receive Date: 20140505
  Receipt Date: 20140505
  Transmission Date: 20141212
  Serious: Yes (Life-Threatening)
  Sender: FDA-Public Use
  Company Number: QA-MYLANLABS-2014S1009544

PATIENT
  Age: 75 Year
  Sex: Female

DRUGS (12)
  1. HYDRALAZINE [Suspect]
     Indication: HYPERTENSIVE CRISIS
     Route: 065
  2. POTASSIUM CHLORIDE [Concomitant]
     Indication: HYPOKALAEMIA
     Route: 048
  3. POTASSIUM CHLORIDE [Concomitant]
     Indication: HYPOKALAEMIA
     Route: 042
  4. NIFEDIPINE [Concomitant]
     Dosage: 20MG
     Route: 048
  5. METOPROLOL [Concomitant]
     Dosage: 25MG
     Route: 065
  6. PERINDOPRIL [Concomitant]
     Dosage: 2.5MG, AND THEN INCREASED TO 7.5 MG/DAY
     Route: 065
  7. ISOSORBIDE DINITRATE [Concomitant]
     Dosage: 25 MCG/MIN, AND THEN INCREASED TO 175 MCG/MIN
     Route: 042
  8. ISOSORBIDE DINITRATE [Concomitant]
     Dosage: 175 MCG/MIN
     Route: 042
  9. AMLODIPINE [Concomitant]
     Dosage: 5 MG/DAY
     Route: 065
  10. PERINDOPRIL [Concomitant]
     Dosage: 7.5 MG/DAY (REGULAR DOSE)
     Route: 065
  11. VALPROIC ACID [Concomitant]
     Indication: CONVULSION
     Dosage: 100 MG/HOUR
     Route: 042
  12. VALPROIC ACID [Concomitant]
     Indication: CONVULSION
     Route: 048

REACTIONS (1)
  - Toxic epidermal necrolysis [Recovered/Resolved]
